FAERS Safety Report 18721470 (Version 4)
Quarter: 2021Q2

REPORT INFORMATION
  Report Type: Spontaneous
  Country: TR (occurrence: TR)
  Receive Date: 20210110
  Receipt Date: 20210407
  Transmission Date: 20210717
  Serious: Yes (Other)
  Sender: FDA-Public Use
  Company Number: TR-AMGEN-TURSP2020213641

PATIENT
  Age: 36 Year
  Sex: Male

DRUGS (4)
  1. MELOX [Concomitant]
     Active Substance: MELOXICAM
     Indication: PAIN
     Dosage: 1 DF, AS NEEDED
     Route: 048
  2. ENBREL [Suspect]
     Active Substance: ETANERCEPT
     Indication: ANKYLOSING SPONDYLITIS
     Dosage: 50 MILLIGRAM, QWK
     Route: 058
     Dates: start: 202004, end: 202011
  3. ENBREL [Suspect]
     Active Substance: ETANERCEPT
     Dosage: 50 MILLIGRAM, QWK
     Route: 058
     Dates: start: 20201228
  4. DULOXX [Concomitant]
     Active Substance: DULOXETINE HYDROCHLORIDE
     Indication: FIBROMYALGIA
     Dosage: 30 MILLIGRAM, QD
     Route: 048

REACTIONS (6)
  - Injection site pustule [Recovered/Resolved]
  - Injection site pain [Recovered/Resolved]
  - COVID-19 [Recovered/Resolved]
  - Injection site reaction [Recovered/Resolved]
  - Injection site swelling [Recovered/Resolved]
  - Injection site haemorrhage [Recovered/Resolved]

NARRATIVE: CASE EVENT DATE: 202011
